FAERS Safety Report 6145193-3 (Version None)
Quarter: 2009Q2

REPORT INFORMATION
  Report Type: 
  Country: None (occurrence: None)
  Receive Date: 20090406
  Receipt Date: 20090327
  Transmission Date: 20091009
  Serious: Yes (Life-Threatening, Hospitalization)
  Sender: FDA-Public Use
  Company Number: JP-JNJFOC-20090401084

PATIENT
  Sex: Male

DRUGS (13)
  1. CRAVIT [Suspect]
     Indication: DRUG USE FOR UNKNOWN INDICATION
     Route: 048
  2. TOPOTECIN [Suspect]
     Indication: GASTRIC CANCER
     Route: 041
  3. NASEA [Concomitant]
     Route: 065
  4. DEXART [Concomitant]
     Route: 065
  5. TAKEPRON [Concomitant]
     Route: 048
  6. BIOFERMIN [Concomitant]
     Route: 048
  7. SUCRALFATE [Concomitant]
     Route: 048
  8. ALBUMIN TANNATE [Concomitant]
     Route: 048
  9. ENSURE H [Concomitant]
     Dosage: 250 UNITS UNSPECIFIED
     Route: 048
  10. SODIUM CHLORIDE [Concomitant]
     Route: 048
  11. VANCOMYCIN HYDROCHLORIDE [Concomitant]
     Route: 048
  12. FLAGYL [Concomitant]
     Route: 048
  13. FLAGYL [Concomitant]
     Route: 048

REACTIONS (2)
  - ASCITES [None]
  - PSEUDOMEMBRANOUS COLITIS [None]
